FAERS Safety Report 4447463-3 (Version None)
Quarter: 2004Q3

REPORT INFORMATION
  Report Type: 
  Country: None (occurrence: None)
  Receive Date: 20040823
  Receipt Date: 20040429
  Transmission Date: 20050211
  Serious: No
  Sender: FDA-Public Use
  Company Number: PHEH2004US04755

PATIENT
  Age: 54 Year
  Sex: Female

DRUGS (4)
  1. ZELNORM [Suspect]
     Indication: IRRITABLE BOWEL SYNDROME
     Dosage: 6 MG BID ORAL
     Route: 048
     Dates: start: 20020201
  2. CRESTOR [Concomitant]
  3. SINGULAIR [Concomitant]
  4. LIPITOR [Concomitant]

REACTIONS (3)
  - BURNING SENSATION [None]
  - OEDEMA PERIPHERAL [None]
  - PERIPHERAL COLDNESS [None]
